FAERS Safety Report 7876660-X (Version None)
Quarter: 2011Q4

REPORT INFORMATION
  Report Type: 
  Country: None (occurrence: None)
  Receive Date: 20111031
  Receipt Date: 20111019
  Transmission Date: 20120403
  Serious: Yes (Hospitalization)
  Sender: FDA-Public Use
  Company Number: US-BAYER-2011-015118

PATIENT
  Age: 45 Year
  Sex: Female
  Weight: 122.45 kg

DRUGS (21)
  1. DOCUSATE SODIUM [Concomitant]
     Indication: CONSTIPATION
     Dosage: 100 MG, HS
     Route: 048
     Dates: start: 20080503, end: 20100413
  2. LORAZEPAM [Concomitant]
     Indication: ANXIETY
     Dosage: 1 MG, HS
     Route: 048
     Dates: start: 20080612, end: 20100929
  3. MULTI-VITAMIN [Concomitant]
     Dosage: UNK
     Dates: start: 20090105
  4. CALCIUM CARBONATE [Concomitant]
     Dosage: UNK
     Dates: start: 20090105
  5. BIOTIN [Concomitant]
     Dosage: UNK
     Dates: start: 20090105
  6. PRILOSEC [Concomitant]
     Indication: ACID BASE BALANCE ABNORMAL
     Dosage: 20 MG, UNK
     Dates: start: 20071101, end: 20091213
  7. VITAMIN B12 NOS [Concomitant]
     Dosage: UNK
     Dates: start: 20090105
  8. AMOXICILLIN [Concomitant]
     Dosage: 500 MG, UNK
     Dates: start: 20081206
  9. NYSTATIN [Concomitant]
     Dosage: 100.000 U, UNK
     Dates: start: 20081230
  10. SEROQUEL [Concomitant]
     Dosage: 300 MG, UNK
     Route: 048
     Dates: end: 20091008
  11. RISPERIDONE [Concomitant]
     Indication: DEPRESSION
     Dosage: 0.5 MG, HS
     Route: 048
     Dates: start: 20050101, end: 20100129
  12. METHOCARBAMOL [Concomitant]
     Indication: ANALGESIC THERAPY
     Dosage: UNK
     Dates: start: 20070101, end: 20090926
  13. PROPRANOLOL [Concomitant]
     Indication: ANXIETY
     Dosage: 60 MG, OM
     Route: 048
     Dates: start: 20080612, end: 20110513
  14. DROSPIRENONE AND ETHINYL ESTRADIOL [Suspect]
     Indication: CONTRACEPTION
     Dosage: UNK
     Dates: start: 20080601, end: 20090101
  15. EFFEXOR XR [Concomitant]
     Indication: DEPRESSION
     Dosage: 150 MG, QD
     Route: 048
     Dates: start: 20050101, end: 20101221
  16. IBUPROFEN [Concomitant]
     Dosage: 600 MG, UNK
     Dates: start: 20080118, end: 20081230
  17. SEROQUEL [Concomitant]
     Indication: DEPRESSION
     Dosage: 200 MG, HS
     Route: 048
     Dates: start: 20050101
  18. PROZAC [Concomitant]
     Indication: DEPRESSION
     Dosage: 40 MG, QD
     Route: 048
     Dates: start: 20050101, end: 20110513
  19. TRAZODONE HYDROCHLORIDE [Concomitant]
     Indication: DEPRESSION
     Dosage: 50 MG, UNK
     Dates: start: 20050101, end: 20110513
  20. KLOR-CON [Concomitant]
     Dosage: UNK UNK, HS
     Route: 048
     Dates: start: 20080520, end: 20090927
  21. YASMIN [Suspect]
     Indication: CONTRACEPTION
     Dosage: UNK
     Dates: start: 20070301, end: 20080601

REACTIONS (6)
  - INJURY [None]
  - EMOTIONAL DISTRESS [None]
  - DYSPNOEA [None]
  - PULMONARY EMBOLISM [None]
  - ANXIETY [None]
  - CHEST PAIN [None]
